FAERS Safety Report 15555987 (Version 1)
Quarter: 2018Q4

REPORT INFORMATION
  Report Type: Spontaneous
  Country: US (occurrence: US)
  Receive Date: 20181023
  Receipt Date: 20181023
  Transmission Date: 20190205
  Serious: Yes (Hospitalization)
  Sender: FDA-Public Use
  Company Number: None

PATIENT
  Age: 41 Year
  Sex: Female

DRUGS (6)
  1. OXYCODONE-ACETAMINOPHEN 10-325MG [Concomitant]
  2. STELARA [Suspect]
     Active Substance: USTEKINUMAB
  3. USTEKINUMAB [Concomitant]
     Active Substance: USTEKINUMAB
  4. FENTANYL. [Concomitant]
     Active Substance: FENTANYL
  5. FERRONS SULFATE [Concomitant]
  6. BUPROPION. [Concomitant]
     Active Substance: BUPROPION

REACTIONS (2)
  - Small intestinal obstruction [None]
  - Crohn^s disease [None]

NARRATIVE: CASE EVENT DATE: 20180525
